FAERS Safety Report 24957134 (Version 2)
Quarter: 2025Q1

REPORT INFORMATION
  Report Type: Spontaneous
  Country: US (occurrence: US)
  Receive Date: 20250211
  Receipt Date: 20250328
  Transmission Date: 20250408
  Serious: No
  Sender: LUNDBECK
  Company Number: US-LUNDBECK-DKLU4010252

PATIENT
  Age: 56 Year
  Sex: Female
  Weight: 53.524 kg

DRUGS (1)
  1. VYEPTI [Suspect]
     Active Substance: EPTINEZUMAB-JJMR
     Indication: Product used for unknown indication
     Dosage: 300 MILLIGRAM
     Route: 041

REACTIONS (2)
  - Sinus congestion [Unknown]
  - Throat irritation [Recovered/Resolved]
